FAERS Safety Report 12494061 (Version 1)
Quarter: 2016Q2

REPORT INFORMATION
  Report Type: Spontaneous
  Country: US (occurrence: US)
  Receive Date: 20160623
  Receipt Date: 20160623
  Transmission Date: 20160815
  Serious: Yes (Other)
  Sender: FDA-Public Use
  Company Number: US-BAUSCH-BL-2016-013930

PATIENT
  Age: 76 Year
  Sex: Male
  Weight: 83.99 kg

DRUGS (10)
  1. COENZYME Q10 [Concomitant]
     Active Substance: UBIDECARENONE
     Indication: PRODUCT USED FOR UNKNOWN INDICATION
     Route: 048
  2. MULTIVITAMIN [Concomitant]
     Active Substance: VITAMINS
     Indication: PRODUCT USED FOR UNKNOWN INDICATION
     Route: 048
  3. ZETIA [Concomitant]
     Active Substance: EZETIMIBE
     Indication: CARDIAC DISORDER
     Route: 048
     Dates: start: 2005
  4. ASPIRIN. [Concomitant]
     Active Substance: ASPIRIN
     Indication: CARDIAC DISORDER
     Route: 048
     Dates: start: 2005
  5. CARVEDILOL. [Concomitant]
     Active Substance: CARVEDILOL
     Indication: HEART RATE
     Dosage: HALF TABLET DAILY
     Route: 048
     Dates: start: 2005
  6. TERAZOSIN [Concomitant]
     Active Substance: TERAZOSIN\TERAZOSIN HYDROCHLORIDE
     Indication: PROSTATE INFECTION
     Route: 048
  7. FISH OIL [Concomitant]
     Active Substance: FISH OIL
     Indication: PRODUCT USED FOR UNKNOWN INDICATION
     Route: 048
  8. ADVANCED EYE RELIEF/ REDNESS INSTANT RELIEF [Suspect]
     Active Substance: NAPHAZOLINE HYDROCHLORIDE\POLYETHYLENE GLYCOL 300
     Indication: EYE BURNS
     Route: 047
     Dates: end: 20160606
  9. LEVOTHYROXINE. [Concomitant]
     Active Substance: LEVOTHYROXINE
     Indication: THYROID DISORDER
     Route: 048
  10. OMEPRAZOLE. [Concomitant]
     Active Substance: OMEPRAZOLE
     Indication: DYSPEPSIA
     Route: 048
     Dates: start: 2014

REACTIONS (4)
  - Foreign body in eye [Recovered/Resolved]
  - Product container issue [Recovered/Resolved]
  - Expired product administered [Recovered/Resolved]
  - Corneal abrasion [Recovering/Resolving]

NARRATIVE: CASE EVENT DATE: 20160606
